FAERS Safety Report 5553716-8 (Version None)
Quarter: 2007Q4

REPORT INFORMATION
  Report Type: 
  Country: None (occurrence: None)
  Receive Date: 20071213
  Receipt Date: 20071207
  Transmission Date: 20080405
  Serious: Yes (Death)
  Sender: FDA-Public Use
  Company Number: DE-BRISTOL-MYERS SQUIBB COMPANY-14012694

PATIENT
  Age: 77 Year
  Sex: Male

DRUGS (2)
  1. MITOMYCIN-C [Suspect]
     Indication: PANCREATIC CARCINOMA
     Dosage: INJECTION
     Route: 042
  2. GEMZAR [Suspect]
     Indication: PANCREATIC CARCINOMA
     Route: 042

REACTIONS (3)
  - CARDIAC FAILURE ACUTE [None]
  - PULMONARY OEDEMA [None]
  - THROMBOCYTOPENIA [None]
